FAERS Safety Report 4590354-8 (Version None)
Quarter: 2005Q1

REPORT INFORMATION
  Report Type: 
  Country: None (occurrence: None)
  Receive Date: 20050218
  Receipt Date: 20050218
  Transmission Date: 20050727
  Serious: Yes (Hospitalization)
  Sender: FDA-Public Use
  Company Number: None

PATIENT
  Age: 81 Year
  Sex: Male
  Weight: 78.0187 kg

DRUGS (2)
  1. DOCETAXEL [Suspect]
     Indication: NON-SMALL CELL LUNG CANCER
     Dosage: 46 MG WEEKLY
     Dates: start: 20041108
  2. 2D 1839 [Suspect]
     Indication: NON-SMALL CELL LUNG CANCER
     Dosage: 250 MG PO DAILY
     Route: 048
     Dates: start: 20041108

REACTIONS (2)
  - ABDOMINAL PAIN UPPER [None]
  - VOMITING [None]
